FAERS Safety Report 4320140-5 (Version None)
Quarter: 2004Q1

REPORT INFORMATION
  Report Type: 
  Country: None (occurrence: None)
  Receive Date: 20040317
  Receipt Date: 20040308
  Transmission Date: 20041129
  Serious: Yes (Hospitalization, Disabling)
  Sender: FDA-Public Use
  Company Number: NLWYE390306NOV03

PATIENT
  Age: 44 Year
  Sex: Female

DRUGS (6)
  1. EFEXOR XR (VENLAFAXINE HDYROCHLORIDE, CAPSULE, EXTENDED RELEASE) [Suspect]
     Indication: DEPRESSION
     Dosage: 75 MG 1X PER 1 DAY ORAL : 150 MG 1X PER 1 DAY ORAL : 187.5 MG 1X PER 1 DAY ORAL
     Route: 048
     Dates: start: 20030201, end: 20030101
  2. EFEXOR XR (VENLAFAXINE HDYROCHLORIDE, CAPSULE, EXTENDED RELEASE) [Suspect]
     Indication: FATIGUE
     Dosage: 75 MG 1X PER 1 DAY ORAL : 150 MG 1X PER 1 DAY ORAL : 187.5 MG 1X PER 1 DAY ORAL
     Route: 048
     Dates: start: 20030201, end: 20030101
  3. EFEXOR XR (VENLAFAXINE HDYROCHLORIDE, CAPSULE, EXTENDED RELEASE) [Suspect]
     Indication: DEPRESSION
     Dosage: 75 MG 1X PER 1 DAY ORAL : 150 MG 1X PER 1 DAY ORAL : 187.5 MG 1X PER 1 DAY ORAL
     Route: 048
     Dates: start: 20030130, end: 20030201
  4. EFEXOR XR (VENLAFAXINE HDYROCHLORIDE, CAPSULE, EXTENDED RELEASE) [Suspect]
     Indication: FATIGUE
     Dosage: 75 MG 1X PER 1 DAY ORAL : 150 MG 1X PER 1 DAY ORAL : 187.5 MG 1X PER 1 DAY ORAL
     Route: 048
     Dates: start: 20030130, end: 20030201
  5. EFEXOR XR (VENLAFAXINE HDYROCHLORIDE, CAPSULE, EXTENDED RELEASE) [Suspect]
     Indication: DEPRESSION
     Dosage: 75 MG 1X PER 1 DAY ORAL : 150 MG 1X PER 1 DAY ORAL : 187.5 MG 1X PER 1 DAY ORAL
     Route: 048
     Dates: start: 20030101, end: 20030301
  6. EFEXOR XR (VENLAFAXINE HDYROCHLORIDE, CAPSULE, EXTENDED RELEASE) [Suspect]
     Indication: FATIGUE
     Dosage: 75 MG 1X PER 1 DAY ORAL : 150 MG 1X PER 1 DAY ORAL : 187.5 MG 1X PER 1 DAY ORAL
     Route: 048
     Dates: start: 20030101, end: 20030301

REACTIONS (7)
  - DISORIENTATION [None]
  - GAIT DISTURBANCE [None]
  - PAIN IN EXTREMITY [None]
  - SENSATION OF HEAVINESS [None]
  - SEROTONIN SYNDROME [None]
  - VISION BLURRED [None]
  - WEIGHT DECREASED [None]
